FAERS Safety Report 22103416 (Version 1)
Quarter: 2023Q1

REPORT INFORMATION
  Report Type: Spontaneous
  Country: US (occurrence: None)
  Receive Date: 20230316
  Receipt Date: 20230316
  Transmission Date: 20230418
  Serious: Yes (Disabling)
  Sender: FDA-Public Use
  Company Number: None

PATIENT
  Age: 49 Year
  Sex: Female
  Weight: 55.35 kg

DRUGS (4)
  1. LUMATEPERONE [Suspect]
     Active Substance: LUMATEPERONE
     Indication: Bipolar disorder
     Dosage: OTHER QUANTITY : 1 CAPSULE(S);?FREQUENCY : DAILY;?
     Route: 048
  2. KLONOPIN [Concomitant]
     Active Substance: CLONAZEPAM
  3. Woman^s multivitamin [Concomitant]
  4. VITAMIN D [Concomitant]
     Active Substance: VITAMIN D NOS

REACTIONS (8)
  - General physical health deterioration [None]
  - Neuralgia [None]
  - Nerve compression [None]
  - Visual impairment [None]
  - Memory impairment [None]
  - Cognitive disorder [None]
  - Post concussion syndrome [None]
  - Weight decreased [None]

NARRATIVE: CASE EVENT DATE: 20220122
